FAERS Safety Report 7386297-7 (Version None)
Quarter: 2011Q1

REPORT INFORMATION
  Report Type: 
  Country: None (occurrence: None)
  Receive Date: 20110331
  Receipt Date: 20110317
  Transmission Date: 20110831
  Serious: Yes (Hospitalization)
  Sender: FDA-Public Use
  Company Number: PHHY2010JP82709

PATIENT
  Sex: Male
  Weight: 53 kg

DRUGS (3)
  1. EXJADE [Suspect]
     Indication: IRON OVERLOAD
     Dosage: 250 MG
     Route: 048
     Dates: start: 20090605, end: 20090730
  2. NEORAL [Concomitant]
     Dosage: 60 MG
     Route: 048
     Dates: start: 20090605, end: 20090730
  3. DESFERAL [Concomitant]
     Indication: IRON OVERLOAD
     Dosage: 500 MG
     Route: 030
     Dates: start: 20090422, end: 20090518

REACTIONS (3)
  - GRAFT VERSUS HOST DISEASE [None]
  - ERYTHEMA [None]
  - FOLLICULITIS [None]
